FAERS Safety Report 7400420-7 (Version None)
Quarter: 2011Q2

REPORT INFORMATION
  Report Type: 
  Country: None (occurrence: None)
  Receive Date: 20110407
  Receipt Date: 20110329
  Transmission Date: 20111010
  Serious: Yes (Hospitalization)
  Sender: FDA-Public Use
  Company Number: CA-JNJFOC-20110400499

PATIENT
  Sex: Female
  Weight: 119 kg

DRUGS (21)
  1. ALBUTEROL SULFATE AUTOHALER [Concomitant]
     Route: 055
  2. RABEPRAZOLE SODIUM [Concomitant]
     Route: 048
  3. CRESTOR [Concomitant]
     Route: 048
  4. BICARBONATE [Concomitant]
     Route: 048
  5. NITRO-DUR [Concomitant]
     Route: 061
  6. MICARDIS [Concomitant]
     Route: 048
  7. APO-GLICLAZIDE [Concomitant]
     Route: 048
  8. CITALOPRAM [Concomitant]
     Route: 048
  9. CYCLOBENZAPRINE [Concomitant]
     Route: 048
  10. ENTERIC COATED ACETYLSALICYLIC ACID [Concomitant]
     Route: 048
  11. ALPRAZOLAM [Concomitant]
     Route: 048
  12. METFORMIN HCL [Concomitant]
     Route: 048
  13. PREVACID [Concomitant]
     Route: 048
  14. RANITIDINE [Concomitant]
     Route: 048
  15. PRILOSEC [Concomitant]
     Route: 048
  16. GOLIMUMAB [Suspect]
     Route: 058
  17. AMITRIPTYLINE [Concomitant]
     Route: 048
  18. MAALOX [Concomitant]
     Route: 048
  19. TYLENOL W/ CODEINE [Concomitant]
     Route: 048
  20. GOLIMUMAB [Suspect]
     Indication: PSORIATIC ARTHROPATHY
     Route: 058
  21. OMEPRAZOLE [Concomitant]
     Route: 048

REACTIONS (1)
  - PNEUMONIA [None]
